FAERS Safety Report 6092979-X (Version None)
Quarter: 2009Q1

REPORT INFORMATION
  Report Type: 
  Country: None (occurrence: None)
  Receive Date: 20090224
  Receipt Date: 20090212
  Transmission Date: 20090719
  Serious: Yes (Other)
  Sender: FDA-Public Use
  Company Number: 56765

PATIENT
  Sex: Female

DRUGS (1)
  1. ACETYLCYSTEINE [Suspect]
     Dosage: NEBULIZED THREE TIMES A DAY

REACTIONS (2)
  - EXPIRED DRUG ADMINISTERED [None]
  - MEDICATION ERROR [None]
